FAERS Safety Report 11948407 (Version 1)
Quarter: 2016Q1

REPORT INFORMATION
  Report Type: Spontaneous
  Country: US (occurrence: None)
  Receive Date: 20160121
  Receipt Date: 20160121
  Transmission Date: 20160526
  Serious: No
  Sender: FDA-Public Use
  Company Number: None

PATIENT
  Age: 21 Year
  Sex: Male

DRUGS (1)
  1. VIREAD [Suspect]
     Active Substance: TENOFOVIR DISOPROXIL FUMARATE
     Indication: HEPATITIS B
     Route: 048

REACTIONS (5)
  - Headache [None]
  - Pain in extremity [None]
  - Pyrexia [None]
  - Hyperhidrosis [None]
  - Decreased appetite [None]

NARRATIVE: CASE EVENT DATE: 20140119
